FAERS Safety Report 25818753 (Version 1)
Quarter: 2025Q3

REPORT INFORMATION
  Report Type: Spontaneous
  Country: US (occurrence: US)
  Receive Date: 20250918
  Receipt Date: 20250918
  Transmission Date: 20251020
  Serious: Yes (Other)
  Sender: ALEXION PHARMACEUTICALS
  Company Number: US-ASTRAZENECA-202509GLO011011US

PATIENT
  Sex: Female
  Weight: 79 kg

DRUGS (14)
  1. NEXIUM [Suspect]
     Active Substance: ESOMEPRAZOLE MAGNESIUM
  2. PROTONIX [Concomitant]
     Active Substance: PANTOPRAZOLE SODIUM
  3. ASPIRIN [Concomitant]
     Active Substance: ASPIRIN
  4. MIRALAX [Concomitant]
     Active Substance: POLYETHYLENE GLYCOL 3350
  5. AMLODIPINE [Concomitant]
     Active Substance: AMLODIPINE BESYLATE
  6. HYDROCHLOROTHIAZIDE [Concomitant]
     Active Substance: HYDROCHLOROTHIAZIDE
  7. LEVAQUIN [Concomitant]
     Active Substance: LEVOFLOXACIN
  8. LOSARTAN [Concomitant]
     Active Substance: LOSARTAN
  9. ONDANSETRON [Concomitant]
     Active Substance: ONDANSETRON
  10. ALBUTEROL [Concomitant]
     Active Substance: ALBUTEROL
  11. LOPERAMIDE [Concomitant]
     Active Substance: LOPERAMIDE
  12. MELATONIN [Concomitant]
     Active Substance: MELATONIN
  13. MONTELUKAST [Concomitant]
     Active Substance: MONTELUKAST
  14. TIZANIDINE [Concomitant]
     Active Substance: TIZANIDINE

REACTIONS (1)
  - Adenocarcinoma gastric [Unknown]
